FAERS Safety Report 5689757-X (Version None)
Quarter: 2008Q1

REPORT INFORMATION
  Report Type: 
  Country: None (occurrence: None)
  Receive Date: 20080328
  Receipt Date: 20070126
  Transmission Date: 20080703
  Serious: Yes (Hospitalization)
  Sender: FDA-Public Use
  Company Number: 2008PL000039

PATIENT
  Age: 64 Year
  Sex: Male

DRUGS (1)
  1. IMURAN [Suspect]
     Indication: MULTIPLE SCLEROSIS
     Dosage: PO
     Route: 048

REACTIONS (1)
  - MALAISE [None]
